FAERS Safety Report 22139804 (Version 4)
Quarter: 2023Q2

REPORT INFORMATION
  Report Type: Report from Study
  Country: US (occurrence: US)
  Receive Date: 20230327
  Receipt Date: 20230605
  Transmission Date: 20230721
  Serious: Yes (Hospitalization)
  Sender: FDA-Public Use
  Company Number: US-JNJFOC-20230250633

PATIENT
  Age: 68 Year
  Sex: Female
  Weight: 65.9 kg

DRUGS (4)
  1. SELEXIPAG [Interacting]
     Active Substance: SELEXIPAG
     Indication: Pulmonary hypertension
     Dosage: UPTRAVI 600MCG ORALLY 2 TIMES DAILY
     Route: 048
  2. SELEXIPAG [Interacting]
     Active Substance: SELEXIPAG
     Route: 048
  3. OPSUMIT [Concomitant]
     Active Substance: MACITENTAN
  4. WARFARIN [Concomitant]
     Active Substance: WARFARIN

REACTIONS (6)
  - Heart rate increased [Unknown]
  - Radiotherapy [Unknown]
  - Pain [Unknown]
  - Drug interaction [Unknown]
  - Adverse event [Unknown]
  - Fatigue [Unknown]

NARRATIVE: CASE EVENT DATE: 20230201
